FAERS Safety Report 5766047-8 (Version None)
Quarter: 2008Q2

REPORT INFORMATION
  Report Type: 
  Country: None (occurrence: None)
  Receive Date: 20080611
  Receipt Date: 20080530
  Transmission Date: 20081010
  Serious: Yes (Disabling)
  Sender: FDA-Public Use
  Company Number: HK-GILEAD-E2B_00000146

PATIENT
  Age: 42 Year
  Sex: Female

DRUGS (3)
  1. HEPSERA [Suspect]
     Indication: HEPATITIS B
     Route: 065
  2. SEBIVO [Concomitant]
     Indication: DRUG USE FOR UNKNOWN INDICATION
     Route: 065
  3. PEGASYS [Concomitant]
     Indication: DRUG USE FOR UNKNOWN INDICATION
     Route: 065

REACTIONS (2)
  - AXONAL NEUROPATHY [None]
  - PARAESTHESIA [None]
